FAERS Safety Report 7708760-9 (Version None)
Quarter: 2011Q3

REPORT INFORMATION
  Report Type: 
  Country: None (occurrence: None)
  Receive Date: 20110825
  Receipt Date: 20110825
  Transmission Date: 20111222
  Serious: No
  Sender: FDA-Public Use
  Company Number: None

PATIENT
  Age: 43 Year
  Sex: Female
  Weight: 83.007 kg

DRUGS (2)
  1. BUPROPION HCL [Suspect]
     Indication: DEPRESSION
     Dosage: 1
     Route: 048
     Dates: start: 20110727, end: 20110824
  2. BUPROPION HCL [Suspect]
     Indication: PREMENSTRUAL SYNDROME
     Dosage: 1
     Route: 048
     Dates: start: 20110727, end: 20110824

REACTIONS (7)
  - INSOMNIA [None]
  - CONDITION AGGRAVATED [None]
  - PRODUCT SUBSTITUTION ISSUE [None]
  - FEELING ABNORMAL [None]
  - ANXIETY [None]
  - HEADACHE [None]
  - DEPRESSION [None]
